FAERS Safety Report 8778891 (Version 1)
Quarter: 2012Q4

REPORT INFORMATION
  Report Type: 
  Country: JP (occurrence: JP)
  Receive Date: 20120912
  Receipt Date: 20120912
  Transmission Date: 20130627
  Serious: Yes (Hospitalization)
  Sender: FDA-Public Use
  Company Number: PHHY2012JP078804

PATIENT
  Age: 77 Year
  Sex: Male

DRUGS (1)
  1. NEORAL [Suspect]
     Indication: INTERSTITIAL LUNG DISEASE
     Route: 048

REACTIONS (3)
  - Feeling abnormal [Unknown]
  - Pyrexia [Unknown]
  - Oral administration complication [Unknown]
